FAERS Safety Report 8083064-6 (Version None)
Quarter: 2012Q1

REPORT INFORMATION
  Report Type: 
  Country: None (occurrence: None)
  Receive Date: 20120127
  Receipt Date: 20110228
  Transmission Date: 20120608
  Serious: No
  Sender: FDA-Public Use
  Company Number: US-ABBOTT-11P-163-0708752-00

PATIENT
  Sex: Female
  Weight: 67.646 kg

DRUGS (1)
  1. HUMIRA [Suspect]
     Indication: PRODUCT USED FOR UNKNOWN INDICATION
     Route: 058
     Dates: start: 20100801

REACTIONS (4)
  - NASOPHARYNGITIS [None]
  - INJECTION SITE PAIN [None]
  - INJECTION SITE OEDEMA [None]
  - NASAL CONGESTION [None]
